FAERS Safety Report 20468534 (Version 3)
Quarter: 2022Q3

REPORT INFORMATION
  Report Type: Spontaneous
  Country: US (occurrence: US)
  Receive Date: 20220214
  Receipt Date: 20220804
  Transmission Date: 20221027
  Serious: Yes (Hospitalization, Other)
  Sender: FDA-Public Use
  Company Number: US-GILEAD-2022-0569268

PATIENT
  Sex: Male
  Weight: 143.76 kg

DRUGS (51)
  1. ATRIPLA [Suspect]
     Active Substance: EFAVIRENZ\EMTRICITABINE\TENOFOVIR DISOPROXIL FUMARATE
     Indication: HIV infection
     Dosage: UNK
     Route: 048
     Dates: start: 2007, end: 201701
  2. ATRIPLA [Suspect]
     Active Substance: EFAVIRENZ\EMTRICITABINE\TENOFOVIR DISOPROXIL FUMARATE
     Dosage: UNK
     Route: 065
     Dates: start: 2006, end: 201701
  3. TRIUMEQ [Concomitant]
     Active Substance: ABACAVIR SULFATE\DOLUTEGRAVIR SODIUM\LAMIVUDINE
  4. .ALPHA.-TOCOPHEROL [Concomitant]
     Active Substance: .ALPHA.-TOCOPHEROL
  5. ATORVASTATIN [Concomitant]
     Active Substance: ATORVASTATIN
  6. CHANTIX [Concomitant]
     Active Substance: VARENICLINE TARTRATE
  7. VITAMIN D NOS [Concomitant]
     Active Substance: VITAMIN D NOS
  8. AMLODIPINE [Concomitant]
     Active Substance: AMLODIPINE BESYLATE
  9. PRAVASTATIN [Concomitant]
     Active Substance: PRAVASTATIN
  10. METOPROLOL [Concomitant]
     Active Substance: METOPROLOL
  11. FLUTICASONE [Concomitant]
     Active Substance: FLUTICASONE
  12. CICLOPIROX [Concomitant]
     Active Substance: CICLOPIROX
  13. QUINAPRIL [Concomitant]
     Active Substance: QUINAPRIL
  14. DOXYCYCLINE [Concomitant]
     Active Substance: DOXYCYCLINE
  15. FENOFIBRATE [Concomitant]
     Active Substance: FENOFIBRATE
  16. ALLOPURINOL [Concomitant]
     Active Substance: ALLOPURINOL
  17. TERBINAFINE [Concomitant]
     Active Substance: TERBINAFINE
  18. ASPIRIN [Concomitant]
     Active Substance: ASPIRIN
  19. NYSTOP [Concomitant]
     Active Substance: NYSTATIN
  20. ASPIRIN [Concomitant]
     Active Substance: ASPIRIN
  21. FLUCONAZOLE [Concomitant]
     Active Substance: FLUCONAZOLE
  22. ESCITALOPRAM [Concomitant]
     Active Substance: ESCITALOPRAM OXALATE
  23. DIPHENHYDRAMINE [Concomitant]
     Active Substance: DIPHENHYDRAMINE
  24. CLONAZEPAM [Concomitant]
     Active Substance: CLONAZEPAM
  25. CLONIDINE [Concomitant]
     Active Substance: CLONIDINE
  26. INDOMETHACIN [Concomitant]
     Active Substance: INDOMETHACIN
  27. CITALOPRAM [Concomitant]
     Active Substance: CITALOPRAM HYDROBROMIDE
  28. NITROSTAT [Concomitant]
     Active Substance: NITROGLYCERIN
  29. KETOCONAZOLE [Concomitant]
     Active Substance: KETOCONAZOLE
  30. AMMONIUM CHLORIDE\DEXTROMETHORPHAN\SODIUM CITRATE [Concomitant]
     Active Substance: AMMONIUM CHLORIDE\DEXTROMETHORPHAN\SODIUM CITRATE
  31. MUPIROCIN [Concomitant]
     Active Substance: MUPIROCIN
  32. GABAPENTIN [Concomitant]
     Active Substance: GABAPENTIN
  33. CODEINE [Concomitant]
     Active Substance: CODEINE
  34. NORTRIPTYLINE [Concomitant]
     Active Substance: NORTRIPTYLINE
  35. ACLIDINIUM BROMIDE [Concomitant]
     Active Substance: ACLIDINIUM BROMIDE
  36. METFORMIN HYDROCHLORIDE [Concomitant]
     Active Substance: METFORMIN HYDROCHLORIDE
  37. TRAMADOL [Concomitant]
     Active Substance: TRAMADOL
  38. AZITHROMYCIN [Concomitant]
     Active Substance: AZITHROMYCIN
  39. LEVEMIR [Concomitant]
     Active Substance: INSULIN DETEMIR
  40. TESTOSTERONE [Concomitant]
     Active Substance: TESTOSTERONE
  41. REQUIP [Concomitant]
     Active Substance: ROPINIROLE HYDROCHLORIDE
  42. HUMALOG [Concomitant]
     Active Substance: INSULIN LISPRO
  43. CREON [Concomitant]
     Active Substance: PANCRELIPASE AMYLASE\PANCRELIPASE LIPASE\PANCRELIPASE PROTEASE
  44. AMBIEN [Concomitant]
     Active Substance: ZOLPIDEM TARTRATE
  45. XTAMPZA ER [Concomitant]
     Active Substance: OXYCODONE
  46. TRESIBA [Concomitant]
     Active Substance: INSULIN DEGLUDEC
  47. OZEMPIC [Concomitant]
     Active Substance: SEMAGLUTIDE
  48. ELIQUIS [Concomitant]
     Active Substance: APIXABAN
  49. CARBAMAZEPINE [Concomitant]
     Active Substance: CARBAMAZEPINE
  50. TOPAMAX [Concomitant]
     Active Substance: TOPIRAMATE
  51. FUROSEMIDE [Concomitant]
     Active Substance: FUROSEMIDE

REACTIONS (13)
  - Chronic kidney disease [Not Recovered/Not Resolved]
  - Renal injury [Unknown]
  - Renal failure [Recovered/Resolved]
  - Emotional distress [Not Recovered/Not Resolved]
  - Anhedonia [Not Recovered/Not Resolved]
  - Anxiety [Not Recovered/Not Resolved]
  - Pain [Not Recovered/Not Resolved]
  - Flank pain [Not Recovered/Not Resolved]
  - Back pain [Not Recovered/Not Resolved]
  - Muscular weakness [Not Recovered/Not Resolved]
  - Quality of life decreased [Not Recovered/Not Resolved]
  - Pollakiuria [Not Recovered/Not Resolved]
  - Gait disturbance [Not Recovered/Not Resolved]

NARRATIVE: CASE EVENT DATE: 20140101
